FAERS Safety Report 12959238 (Version 1)
Quarter: 2016Q4

REPORT INFORMATION
  Report Type: Spontaneous
  Country: CA (occurrence: CA)
  Receive Date: 20161121
  Receipt Date: 20161121
  Transmission Date: 20170207
  Serious: Yes (Other)
  Sender: FDA-Public Use
  Company Number: CA-BAYER-2016-216242

PATIENT
  Age: 10 Year
  Sex: Female

DRUGS (2)
  1. ALEVE [Suspect]
     Active Substance: NAPROXEN SODIUM
     Dosage: UNK
  2. TOCILIZUMAB [Suspect]
     Active Substance: TOCILIZUMAB
     Dosage: UNK UNK, OW

REACTIONS (4)
  - Neck pain [None]
  - Arthralgia [None]
  - Pain in extremity [None]
  - Rheumatoid arthritis [None]

NARRATIVE: CASE EVENT DATE: 2002
